FAERS Safety Report 25358547 (Version 1)
Quarter: 2025Q2

REPORT INFORMATION
  Report Type: Spontaneous
  Country: IL (occurrence: IL)
  Receive Date: 20250526
  Receipt Date: 20250526
  Transmission Date: 20250716
  Serious: Yes (Hospitalization, Other)
  Sender: BRISTOL-MYERS SQUIBB COMPANY
  Company Number: IL-BRISTOL-MYERS SQUIBB COMPANY-2025-074689

PATIENT
  Age: 92 Year
  Sex: Male
  Weight: 71 kg

DRUGS (9)
  1. APIXABAN [Interacting]
     Active Substance: APIXABAN
     Indication: Product used for unknown indication
  2. PHENYTOIN [Interacting]
     Active Substance: PHENYTOIN
     Indication: Product used for unknown indication
  3. OMEPRAZOLE [Concomitant]
     Active Substance: OMEPRAZOLE
     Indication: Product used for unknown indication
  4. BISOPROLOL [Concomitant]
     Active Substance: BISOPROLOL
     Indication: Product used for unknown indication
     Dosage: MORNING
  5. BISOPROLOL [Concomitant]
     Active Substance: BISOPROLOL
     Dosage: EVENING
  6. SIMVASTATIN [Concomitant]
     Active Substance: SIMVASTATIN
     Indication: Product used for unknown indication
  7. TAMSULOSIN [Concomitant]
     Active Substance: TAMSULOSIN
     Indication: Product used for unknown indication
  8. VITAMIN B12 [Concomitant]
     Active Substance: CYANOCOBALAMIN
     Indication: Product used for unknown indication
  9. BISACODYL [Concomitant]
     Active Substance: BISACODYL
     Indication: Product used for unknown indication

REACTIONS (5)
  - Off label use [Unknown]
  - Drug interaction [Unknown]
  - Haemangioma [Unknown]
  - Brain neoplasm benign [Unknown]
  - Tumour haemorrhage [Unknown]
